FAERS Safety Report 10068311 (Version 2)
Quarter: 2014Q2

REPORT INFORMATION
  Report Type: Spontaneous
  Country: US (occurrence: US)
  Receive Date: 20140409
  Receipt Date: 20140411
  Transmission Date: 20141212
  Serious: No
  Sender: FDA-Public Use
  Company Number: US-PFIZER INC-2014095853

PATIENT
  Sex: Female

DRUGS (1)
  1. CELEBREX [Suspect]
     Indication: OSTEOPOROSIS
     Dosage: UNK
     Dates: start: 2009

REACTIONS (2)
  - Drug ineffective for unapproved indication [Unknown]
  - Nasopharyngitis [Unknown]
